FAERS Safety Report 9657268 (Version 1)
Quarter: 2013Q4

REPORT INFORMATION
  Report Type: Spontaneous
  Country: TW (occurrence: TW)
  Receive Date: 20131030
  Receipt Date: 20131030
  Transmission Date: 20140711
  Serious: Yes (Other)
  Sender: FDA-Public Use
  Company Number: TW-TEVA-440232ISR

PATIENT
  Age: 1 Year
  Sex: Female
  Weight: 12 kg

DRUGS (2)
  1. CISPLATIN [Suspect]
     Indication: MEDULLOBLASTOMA
     Dosage: 5 CYCLES
     Route: 065
  2. CYCLOPHOSPHAMIDE [Suspect]
     Indication: MEDULLOBLASTOMA
     Dosage: 5 CYCLES
     Route: 065

REACTIONS (5)
  - Hepatic function abnormal [Unknown]
  - Coagulopathy [Unknown]
  - Febrile neutropenia [Unknown]
  - Septic shock [Unknown]
  - Wound infection [Unknown]
